FAERS Safety Report 18725886 (Version 2)
Quarter: 2022Q2

REPORT INFORMATION
  Report Type: Spontaneous
  Country: US (occurrence: US)
  Receive Date: 20210111
  Receipt Date: 20220404
  Transmission Date: 20220720
  Serious: Yes (Other)
  Sender: FDA-Public Use
  Company Number: US-GLAXOSMITHKLINE-US2021GSK005782

PATIENT
  Sex: Male

DRUGS (12)
  1. ZANTAC [Suspect]
     Active Substance: RANITIDINE HYDROCHLORIDE
     Indication: Dyspepsia
     Dosage: UNK UNK, PRN
     Route: 065
     Dates: start: 198801, end: 201901
  2. ZANTAC [Suspect]
     Active Substance: RANITIDINE HYDROCHLORIDE
     Dosage: OCCASIONAL|UNKNOWN AT THIS TIME|OVER THE COUNTER
     Route: 065
     Dates: start: 198801, end: 201901
  3. ZANTAC [Suspect]
     Active Substance: RANITIDINE HYDROCHLORIDE
     Indication: Dyspepsia
     Dosage: UNK UNK, PRN
     Route: 065
     Dates: start: 198801, end: 201901
  4. ZANTAC [Suspect]
     Active Substance: RANITIDINE HYDROCHLORIDE
     Dosage: OCCASIONAL|UNKNOWN AT THIS TIME|OVER THE COUNTER
     Route: 065
     Dates: start: 198801, end: 201901
  5. ZANTAC [Suspect]
     Active Substance: RANITIDINE HYDROCHLORIDE
     Indication: Dyspepsia
     Dosage: UNK, PRN
     Route: 065
     Dates: start: 198801, end: 201901
  6. ZANTAC [Suspect]
     Active Substance: RANITIDINE HYDROCHLORIDE
     Dosage: OCCASIONAL||OVER THE COUNTER
     Route: 065
     Dates: start: 198801, end: 201901
  7. RANITIDINE [Suspect]
     Active Substance: RANITIDINE
     Indication: Dyspepsia
     Dosage: |OVER THE COUNTER
     Route: 065
     Dates: start: 201901, end: 201901
  8. RANITIDINE [Suspect]
     Active Substance: RANITIDINE
     Dosage: |OVER THE COUNTER
     Route: 065
     Dates: start: 201901, end: 201901
  9. RANITIDINE [Suspect]
     Active Substance: RANITIDINE
     Indication: Dyspepsia
     Dosage: |OVER THE COUNTER
     Route: 065
     Dates: start: 201901, end: 201901
  10. RANITIDINE [Suspect]
     Active Substance: RANITIDINE
     Dosage: |OVER THE COUNTER
     Route: 065
     Dates: start: 201901, end: 201901
  11. RANITIDINE HYDROCHLORIDE [Suspect]
     Active Substance: RANITIDINE HYDROCHLORIDE
     Indication: Dyspepsia
     Dosage: UNK, PRN
     Route: 065
     Dates: start: 198801, end: 201901
  12. RANITIDINE HYDROCHLORIDE [Suspect]
     Active Substance: RANITIDINE HYDROCHLORIDE
     Dosage: OCCASIONAL||OVER THE COUNTER
     Route: 065
     Dates: start: 198801, end: 201901

REACTIONS (1)
  - Renal cancer [Unknown]
